FAERS Safety Report 6835285-5 (Version None)
Quarter: 2010Q3

REPORT INFORMATION
  Report Type: 
  Country: None (occurrence: None)
  Receive Date: 20100713
  Receipt Date: 20100702
  Transmission Date: 20110219
  Serious: Yes (Other)
  Sender: FDA-Public Use
  Company Number: US-JNJFOC-20100701863

PATIENT
  Sex: Male
  Weight: 66.23 kg

DRUGS (4)
  1. SIMPONI [Suspect]
     Indication: RHEUMATOID ARTHRITIS
     Route: 058
  2. REMICADE [Suspect]
     Indication: RHEUMATOID ARTHRITIS
     Route: 042
  3. LORTAB [Concomitant]
     Indication: PAIN
  4. TRAZODONE HYDROCHLORIDE [Concomitant]
     Indication: SLEEP DISORDER

REACTIONS (3)
  - DECREASED APPETITE [None]
  - PANCREATIC DISORDER [None]
  - WEIGHT DECREASED [None]
